FAERS Safety Report 15076097 (Version 1)
Quarter: 2018Q2

REPORT INFORMATION
  Report Type: Spontaneous
  Country: GB (occurrence: GB)
  Receive Date: 20180627
  Receipt Date: 20180627
  Transmission Date: 20180711
  Serious: Yes (Other)
  Sender: FDA-Public Use
  Company Number: PHHY2018GB026589

PATIENT
  Age: 71 Year
  Sex: Female
  Weight: 84 kg

DRUGS (15)
  1. OMEPRAZOLE. [Concomitant]
     Active Substance: OMEPRAZOLE
     Indication: PRODUCT USED FOR UNKNOWN INDICATION
     Dosage: 1 DF, QD (MORNING, CAN USE IN EVENING)
     Route: 065
     Dates: start: 20170324
  2. PARACETAMOL [Concomitant]
     Active Substance: ACETAMINOPHEN
     Indication: PRODUCT USED FOR UNKNOWN INDICATION
     Dosage: 2 DF, QID
     Route: 065
     Dates: start: 20120621
  3. MATRIFEN [Concomitant]
     Active Substance: FENTANYL
     Indication: PAIN
     Dosage: 1 DF, Q72H
     Route: 062
     Dates: start: 20171220
  4. VENTOLIN [Concomitant]
     Active Substance: ALBUTEROL SULFATE
     Indication: PRODUCT USED FOR UNKNOWN INDICATION
     Dosage: UNK (1 OR 2 PUFFS UP TO 4 TIMES A DAY)
     Route: 055
  5. BUDESONIDE. [Concomitant]
     Active Substance: BUDESONIDE
     Indication: PRODUCT USED FOR UNKNOWN INDICATION
     Dosage: 4 DF, QD (PUFFS)
     Route: 055
     Dates: start: 20140721
  6. ACIDEX [Concomitant]
     Active Substance: CALCIUM CARBONATE\SODIUM ALGINATE\SODIUM BICARBONATE
     Indication: PRODUCT USED FOR UNKNOWN INDICATION
     Dosage: UNK (1 OR 2 TEASPOONS UP TO 4 HOURLY)
     Route: 065
     Dates: start: 20130304
  7. MATRIFEN [Concomitant]
     Active Substance: FENTANYL
     Dosage: 1 DF, Q72H
     Route: 062
     Dates: start: 20180109
  8. FENCINO [Concomitant]
     Indication: PAIN
     Dosage: 1 DF, Q72H
     Route: 062
     Dates: start: 20180109
  9. THEICAL D3 [Concomitant]
     Indication: PRODUCT USED FOR UNKNOWN INDICATION
     Dosage: 1 DF, QD
     Route: 065
     Dates: start: 20161010
  10. COSMOCOL [Concomitant]
     Indication: CONSTIPATION
     Dosage: 1 DF, QD
     Route: 065
     Dates: start: 20140912
  11. ATORVASTATIN [Suspect]
     Active Substance: ATORVASTATIN
     Indication: PRODUCT USED FOR UNKNOWN INDICATION
     Dosage: UNK
     Route: 065
  12. COSMOCOL [Concomitant]
     Dosage: 1 DF, QD
     Route: 065
     Dates: start: 20180323
  13. BENDROFLUMETHIAZIDE [Concomitant]
     Active Substance: BENDROFLUMETHIAZIDE
     Indication: JOINT SWELLING
     Dosage: 1 DF, QD (MORNING)
     Dates: start: 20171220
  14. ALGESAL [Concomitant]
     Active Substance: DIETHYLAMINE SALICYLATE
     Indication: OSTEOARTHRITIS
     Dosage: 1 DF, TID (3 TIMES A DAY)
     Route: 065
     Dates: start: 20130304
  15. OMEPRAZOLE. [Concomitant]
     Active Substance: OMEPRAZOLE
     Dosage: 1 DF, QD (MORNING, CAN USE IN EVENING)
     Route: 065
     Dates: start: 20180323

REACTIONS (3)
  - Sleep disorder [Recovered/Resolved]
  - Malaise [Unknown]
  - Myalgia [Unknown]

NARRATIVE: CASE EVENT DATE: 20180323
